FAERS Safety Report 6073282-0 (Version None)
Quarter: 2009Q1

REPORT INFORMATION
  Report Type: 
  Country: None (occurrence: None)
  Receive Date: 20090205
  Receipt Date: 20090123
  Transmission Date: 20090719
  Serious: Yes (Hospitalization)
  Sender: FDA-Public Use
  Company Number: DSA_33132_2009

PATIENT
  Sex: Male

DRUGS (12)
  1. DILTIAZEM HYDROCHLORIDE [Suspect]
     Indication: HYPERTENSION
     Dosage: (300 MG QD ORAL) A FEW YEARS
     Route: 048
     Dates: end: 20080520
  2. CORDARONE [Suspect]
     Indication: ARRHYTHMIA
     Dosage: 200 MG QD ORAL A FEW YEARS
     Route: 048
     Dates: end: 20080519
  3. RILMENIDINE (RILMENIDINE) 1 MG [Suspect]
     Indication: HYPERTENSION
     Dosage: 1 MG QD ORAL A FEW YEARS
     Route: 048
     Dates: end: 20080521
  4. NICERGOLINE (NICERGOLINE ) [Suspect]
     Indication: MENTAL IMPAIRMENT
     Dosage: 3 DF QD ORAL A FEW YEARS
     Route: 048
     Dates: end: 20080519
  5. DEXRAZOXANE (ZOXAN LP - DOXAZOSINE) 4 MG [Suspect]
     Indication: PROSTATIC ADENOMA
     Dosage: (4 MG QD), ORAL A FEW YEARS
     Route: 048
     Dates: end: 20080519
  6. FORTZAAR (FORTZAAR - LOSARTAN HYDROCHLOROTHIAZIDE) (NOT SPECIFIED [Suspect]
     Dosage: 1 DF QD ORAL
     Route: 048
     Dates: end: 20080519
  7. MONICOR LP [Concomitant]
  8. BROMAZEPAM [Concomitant]
  9. KARDEGIC /00002703/ [Concomitant]
  10. GARDENAL /00023201/ [Concomitant]
  11. ALLOPURINOL [Concomitant]
  12. TAHOR [Concomitant]

REACTIONS (10)
  - BALANCE DISORDER [None]
  - BLOOD PRESSURE DIASTOLIC DECREASED [None]
  - BODY TEMPERATURE DECREASED [None]
  - BRADYCARDIA [None]
  - CARDIOMEGALY [None]
  - CEREBRAL DISORDER [None]
  - CONFUSIONAL STATE [None]
  - DRUG INTERACTION [None]
  - ELECTROCARDIOGRAM QT PROLONGED [None]
  - RALES [None]
